FAERS Safety Report 5192052-9 (Version None)
Quarter: 2006Q4

REPORT INFORMATION
  Report Type: 
  Country: None (occurrence: None)
  Receive Date: 20061220
  Receipt Date: 20061207
  Transmission Date: 20070319
  Serious: Yes (Other)
  Sender: FDA-Public Use
  Company Number: 2006151684

PATIENT
  Sex: 0

DRUGS (1)
  1. MYCOBUTIN [Suspect]

REACTIONS (1)
  - OPPORTUNISTIC INFECTION [None]
